FAERS Safety Report 5280798-3 (Version None)
Quarter: 2007Q1

REPORT INFORMATION
  Report Type: 
  Country: None (occurrence: None)
  Receive Date: 20070329
  Receipt Date: 20070316
  Transmission Date: 20070707
  Serious: Yes (Hospitalization, Other)
  Sender: FDA-Public Use
  Company Number: MX-ELI_LILLY_AND_COMPANY-MX200702003860

PATIENT
  Age: 44 Year
  Sex: Female
  Weight: 53 kg

DRUGS (5)
  1. CYMBALTA [Suspect]
     Indication: DEPRESSION
     Dosage: 60 MG, 1/2 TABLET IN MORNING
     Route: 048
     Dates: start: 20070126, end: 20070131
  2. REMERON /MEX/ [Concomitant]
     Indication: DEPRESSION
     Dosage: 15 MG, UNKNOWN
     Route: 048
     Dates: start: 20061211, end: 20070115
  3. REMERON /MEX/ [Concomitant]
     Dosage: 30 MG, UNKNOWN
     Route: 048
     Dates: start: 20070116, end: 20070131
  4. TRILEPTAL [Concomitant]
     Indication: DEPRESSION
     Dosage: 1/2 TABLET, UNKNOWN
     Route: 048
     Dates: start: 20070116, end: 20070131
  5. TRILEPTAL [Concomitant]
     Dosage: UNK, EACH MORNING
     Route: 048
     Dates: start: 20070116, end: 20070131

REACTIONS (12)
  - ANAPHYLACTIC REACTION [None]
  - ANOREXIA [None]
  - ASTHENIA [None]
  - BALANCE DISORDER [None]
  - FATIGUE [None]
  - GAIT DISTURBANCE [None]
  - HYPERSENSITIVITY [None]
  - LARYNGOSPASM [None]
  - PALPITATIONS [None]
  - PARAESTHESIA [None]
  - PNEUMONIA [None]
  - WEIGHT DECREASED [None]
